FAERS Safety Report 17361127 (Version 1)
Quarter: 2020Q1

REPORT INFORMATION
  Report Type: Spontaneous
  Country: US (occurrence: US)
  Receive Date: 20200203
  Receipt Date: 20200203
  Transmission Date: 20200409
  Serious: No
  Sender: FDA-Public Use
  Company Number: US-MSN LABORATORIES PRIVATE LIMITED-2079723

PATIENT
  Age: 58 Year
  Sex: Female
  Weight: 77.27 kg

DRUGS (2)
  1. PREGABALIN. [Suspect]
     Active Substance: PREGABALIN
     Indication: TONGUE DISCOMFORT
     Route: 048
     Dates: start: 201906
  2. CRESTOR [Concomitant]
     Active Substance: ROSUVASTATIN CALCIUM
     Route: 065

REACTIONS (2)
  - Product use in unapproved indication [Unknown]
  - Sinus disorder [Not Recovered/Not Resolved]
